FAERS Safety Report 9306332 (Version 1)
Quarter: 2013Q2

REPORT INFORMATION
  Report Type: Spontaneous
  Country: ES (occurrence: ES)
  Receive Date: 20130523
  Receipt Date: 20130523
  Transmission Date: 20140414
  Serious: Yes (Other)
  Sender: FDA-Public Use
  Company Number: ES-ASTRAZENECA-2013SE34674

PATIENT
  Age: 67 Year
  Sex: Female

DRUGS (7)
  1. FASLODEX [Suspect]
     Route: 030
     Dates: start: 2005
  2. PRADAXA [Suspect]
     Indication: ATRIAL FIBRILLATION
     Route: 048
     Dates: start: 20130406
  3. ENALAPRIL [Concomitant]
     Route: 048
     Dates: start: 201303
  4. BOI-K [Concomitant]
     Route: 048
     Dates: start: 20130329
  5. EMCONCOR COR [Concomitant]
     Route: 048
     Dates: start: 201212
  6. LANIRAPID [Concomitant]
     Route: 048
     Dates: start: 20130329
  7. SEGURIL [Concomitant]
     Route: 048
     Dates: start: 201303

REACTIONS (1)
  - Haemolysis [Recovered/Resolved]
